FAERS Safety Report 6544555-X (Version None)
Quarter: 2010Q1

REPORT INFORMATION
  Report Type: 
  Country: None (occurrence: None)
  Receive Date: 20100115
  Receipt Date: 20100106
  Transmission Date: 20100710
  Serious: Yes (Other)
  Sender: FDA-Public Use
  Company Number: OMPQ-NO-0912S-1037

PATIENT
  Age: 66 Year
  Sex: Male

DRUGS (12)
  1. OMNIPAQUE 350 [Suspect]
     Indication: ARTERIOSCLEROSIS OBLITERANS
     Dosage: 100 ML, SINGLE DOSE, I.V.
     Route: 042
     Dates: start: 20091030, end: 20091030
  2. DIGOXIN [Concomitant]
  3. ACETYLSALICYLIC ACID (BAYASPIRIN) [Concomitant]
  4. AZOSEMIDE (DIART) [Concomitant]
  5. ISOSORBIDE MONONITRATE (ITOROL) [Concomitant]
  6. WARFARIN [Concomitant]
  7. AMIODARONE HYDROCHLORIDE (ANCARON) [Concomitant]
  8. ENALAPRIL MALEATE [Concomitant]
  9. AMARYL [Concomitant]
  10. PIOGLITAZONE HYDROCHLORIDE (ACTOS) [Concomitant]
  11. GLUCOBAY [Concomitant]
  12. METFORMIN HYDROCHLORIDE (MEDET) [Concomitant]

REACTIONS (2)
  - RETINAL HAEMORRHAGE [None]
  - VITREOUS HAEMORRHAGE [None]
